FAERS Safety Report 7004708-3 (Version None)
Quarter: 2010Q3

REPORT INFORMATION
  Report Type: 
  Country: None (occurrence: None)
  Receive Date: 20100921
  Receipt Date: 20100913
  Transmission Date: 20110219
  Serious: No
  Sender: FDA-Public Use
  Company Number: NL-US-EMD SERONO, INC.-7017716

PATIENT
  Sex: Female
  Weight: 80 kg

DRUGS (5)
  1. REBIF [Suspect]
     Indication: MULTIPLE SCLEROSIS
     Route: 058
     Dates: start: 20100816, end: 20100828
  2. REBIF [Suspect]
     Route: 058
     Dates: start: 20100830, end: 20100911
  3. REBIF [Suspect]
     Route: 058
     Dates: start: 20100913
  4. CALCIUM AND VIT D3 [Concomitant]
     Route: 048
     Dates: start: 20100801, end: 20100913
  5. SERTRALINE HYDROCHLORIDE [Concomitant]
     Indication: DEPRESSION
     Route: 048
     Dates: start: 20100801

REACTIONS (1)
  - DYSPNOEA [None]
